FAERS Safety Report 5207480-2 (Version None)
Quarter: 2007Q1

REPORT INFORMATION
  Report Type: 
  Country: None (occurrence: None)
  Receive Date: 20070112
  Receipt Date: 20070102
  Transmission Date: 20070707
  Serious: Yes (Disabling, Congenital Anomaly)
  Sender: FDA-Public Use
  Company Number: FR-ABBOTT-07P-056-0354693-00

PATIENT
  Sex: Female

DRUGS (1)
  1. DEPAKENE [Suspect]
     Indication: DRUG EXPOSURE DURING PREGNANCY
     Route: 064

REACTIONS (5)
  - CONGENITAL CEREBRAL CYST [None]
  - CONGENITAL NOSE MALFORMATION [None]
  - DYSMORPHISM [None]
  - FOETAL DISORDER [None]
  - SKULL MALFORMATION [None]
